FAERS Safety Report 22626236 (Version 1)
Quarter: 2023Q2

REPORT INFORMATION
  Report Type: Spontaneous
  Country: US (occurrence: None)
  Receive Date: 20230620
  Receipt Date: 20230620
  Transmission Date: 20230721
  Serious: Yes (Life-Threatening)
  Sender: FDA-Public Use
  Company Number: None

PATIENT
  Age: 72 Year
  Sex: Female
  Weight: 85.5 kg

DRUGS (14)
  1. TRAMADOL [Suspect]
     Active Substance: TRAMADOL
     Indication: Procedural pain
     Dosage: OTHER QUANTITY : 1 TABLET(S);?FREQUENCY : EVERY 4 HOURS;?
     Route: 048
     Dates: start: 20230514, end: 20230601
  2. DEXCOM [Concomitant]
  3. Tandem T slim insulin pump [Concomitant]
  4. candesarta [Concomitant]
  5. REPATHA [Concomitant]
  6. INSULIN [Concomitant]
  7. SYNTHROID [Concomitant]
     Active Substance: LEVOTHYROXINE SODIUM
  8. LOPRESSOR [Concomitant]
     Active Substance: METOPROLOL TARTRATE
  9. NABUMETONE [Concomitant]
     Active Substance: NABUMETONE
  10. PRAVASTATIN [Concomitant]
     Active Substance: PRAVASTATIN
  11. TRAZODONE [Concomitant]
     Active Substance: TRAZODONE HYDROCHLORIDE
  12. ONE-A-DAY NOS [Concomitant]
     Active Substance: MINERALS\VITAMINS
  13. VITAMIN D [Concomitant]
     Active Substance: VITAMIN D NOS
  14. STOOL SOFTENER (DOCUSATE) [Concomitant]
     Active Substance: DOCUSATE

REACTIONS (1)
  - Blood glucose decreased [None]

NARRATIVE: CASE EVENT DATE: 20230602
